FAERS Safety Report 22180259 (Version 6)
Quarter: 2024Q4

REPORT INFORMATION
  Report Type: Spontaneous
  Country: US (occurrence: US)
  Receive Date: 20230406
  Receipt Date: 20241202
  Transmission Date: 20250114
  Serious: No
  Sender: PFIZER
  Company Number: US-PFIZER INC-PV202300061933

PATIENT
  Age: 73 Year
  Sex: Female

DRUGS (1)
  1. IBRANCE [Suspect]
     Active Substance: PALBOCICLIB
     Indication: Bone cancer
     Dosage: 125 MG, CYCLIC, (TAKE AT THE SAME TIME DAILY ON DAYS 1-21 OF EACH 28 DAY)
     Route: 048

REACTIONS (2)
  - Oropharyngeal discomfort [Unknown]
  - Off label use [Unknown]
